FAERS Safety Report 6373521-2 (Version None)
Quarter: 2009Q3

REPORT INFORMATION
  Report Type: 
  Country: None (occurrence: None)
  Receive Date: 20090924
  Receipt Date: 20090302
  Transmission Date: 20100115
  Serious: No
  Sender: FDA-Public Use
  Company Number: US-ASTRAZENECA-2009UW05602

PATIENT
  Age: 53 Year
  Sex: Female
  Weight: 82.6 kg

DRUGS (6)
  1. SEROQUEL [Suspect]
     Indication: ILL-DEFINED DISORDER
     Route: 048
  2. XANAX [Concomitant]
  3. ADVAIR HFA [Concomitant]
  4. ALBUTEROL [Concomitant]
  5. LISINOPRIL [Concomitant]
  6. ANTI-INFLAMMATORY [Concomitant]

REACTIONS (3)
  - AGGRESSION [None]
  - JOB DISSATISFACTION [None]
  - WEIGHT INCREASED [None]
